FAERS Safety Report 7659571 (Version 4)
Quarter: 2013Q3

REPORT INFORMATION
  Report Type: Spontaneous
  Country: US (occurrence: US)
  Receive Date: 20101108
  Receipt Date: 20130924
  Transmission Date: 20140515
  Serious: Yes (Hospitalization, Other)
  Sender: FDA-Public Use
  Company Number: US-US-EMD SERONO, INC.-231426J09USA

PATIENT
  Age: 59 Year
  Sex: Female
  Weight: 100 kg

DRUGS (20)
  1. REBIF [Suspect]
     Indication: MULTIPLE SCLEROSIS
     Dates: start: 20030723, end: 20050101
  2. REBIF [Suspect]
     Dates: end: 200707
  3. REBIF [Suspect]
     Route: 058
     Dates: start: 20070710, end: 20090102
  4. REBIF [Suspect]
     Route: 058
     Dates: start: 20090513, end: 201304
  5. REBIF [Suspect]
     Route: 058
     Dates: start: 201304
  6. LEVOTHYROXINE [Concomitant]
     Indication: THYROID DISORDER
     Route: 048
  7. DETROL                             /01350201/ [Concomitant]
     Indication: URINARY INCONTINENCE
  8. LISINOPRIL [Concomitant]
     Indication: HYPERTENSION
     Route: 048
  9. METFORMIN [Concomitant]
     Indication: PRODUCT USED FOR UNKNOWN INDICATION
     Route: 048
  10. METHOCARBAMOL [Concomitant]
     Indication: PRODUCT USED FOR UNKNOWN INDICATION
     Route: 048
  11. METOPROLOL TARTRATE [Concomitant]
     Indication: HYPERTENSION
     Route: 048
  12. NEXIUM                             /01479302/ [Concomitant]
     Indication: PRODUCT USED FOR UNKNOWN INDICATION
     Route: 048
  13. PLAVIX                             /01220701/ [Concomitant]
     Indication: PRODUCT USED FOR UNKNOWN INDICATION
     Route: 048
  14. ROPINIROLE HYDROCHLORIDE [Concomitant]
     Indication: PRODUCT USED FOR UNKNOWN INDICATION
     Route: 048
  15. VITAMIN D                          /00107901/ [Concomitant]
     Indication: PRODUCT USED FOR UNKNOWN INDICATION
     Route: 048
  16. HYDROCHLOROTHIAZIDE [Concomitant]
     Indication: PRODUCT USED FOR UNKNOWN INDICATION
     Route: 048
  17. GABAPENTIN [Concomitant]
     Indication: PRODUCT USED FOR UNKNOWN INDICATION
     Dosage: 2 TABLETS THREE TIMES DAILY
     Route: 048
  18. FLONASE [Concomitant]
     Indication: SLEEP APNOEA SYNDROME
     Route: 045
  19. FISH OIL [Concomitant]
     Indication: PRODUCT USED FOR UNKNOWN INDICATION
     Route: 048
  20. DIPHENHYDRAMINE HYDROCHLORIDE [Concomitant]
     Indication: PRODUCT USED FOR UNKNOWN INDICATION
     Route: 048

REACTIONS (6)
  - Cardiomyopathy [Not Recovered/Not Resolved]
  - Aortic valve incompetence [Not Recovered/Not Resolved]
  - Intracranial aneurysm [Recovered/Resolved]
  - Cerebrovascular accident [Recovering/Resolving]
  - Gallbladder perforation [Recovered/Resolved]
  - Blood pressure increased [Recovering/Resolving]
